FAERS Safety Report 4636717-3 (Version None)
Quarter: 2005Q2

REPORT INFORMATION
  Report Type: 
  Country: None (occurrence: None)
  Receive Date: 20050414
  Receipt Date: 20050407
  Transmission Date: 20051028
  Serious: Yes (Hospitalization, Other)
  Sender: FDA-Public Use
  Company Number: 2005049753

PATIENT
  Age: 86 Year
  Sex: Female
  Weight: 55 kg

DRUGS (8)
  1. NORVASC [Suspect]
     Indication: ILL-DEFINED DISORDER
     Dosage: 7.5 MG (DAILY), ORAL
     Route: 048
  2. HEPARIN [Suspect]
     Indication: EMBOLISM
     Dosage: SEE IMAGE
     Route: 042
  3. WARFARIN SODIUM [Suspect]
     Indication: EMBOLISM
     Dosage: ( 4MG), ORAL
     Route: 048
  4. ASPIRIN [Concomitant]
  5. FUROSEMIDE [Concomitant]
  6. LORAZEPAM [Concomitant]
  7. ISOSORBIDE MONONITRATE [Concomitant]
  8. CYANOCOBALAMIN [Concomitant]

REACTIONS (18)
  - ATRIAL FIBRILLATION [None]
  - BALANCE DISORDER [None]
  - CYANOSIS [None]
  - DYSPNOEA [None]
  - EMBOLISM [None]
  - HAEMATOMA [None]
  - HAEMOGLOBIN DECREASED [None]
  - INTERNATIONAL NORMALISED RATIO DECREASED [None]
  - INTERNATIONAL NORMALISED RATIO INCREASED [None]
  - MEDICATION ERROR [None]
  - OEDEMA PERIPHERAL [None]
  - PAIN IN EXTREMITY [None]
  - PLATELET COUNT DECREASED [None]
  - PULMONARY OEDEMA [None]
  - RENAL IMPAIRMENT [None]
  - RIGHT VENTRICULAR FAILURE [None]
  - SECRETION DISCHARGE [None]
  - SKIN NECROSIS [None]
